FAERS Safety Report 6929223-4 (Version None)
Quarter: 2010Q3

REPORT INFORMATION
  Report Type: 
  Country: None (occurrence: None)
  Receive Date: 20100813
  Receipt Date: 20100729
  Transmission Date: 20110219
  Serious: Yes (Death)
  Sender: FDA-Public Use
  Company Number: AE 2010-071

PATIENT
  Age: 59 Year
  Sex: Male

DRUGS (7)
  1. FAZACLO ODT [Suspect]
     Indication: SCHIZOPHRENIA
     Dosage: 300MG DAILY PO
     Route: 048
     Dates: start: 20100211
  2. NEXIUM [Concomitant]
  3. SIMVASTATIN [Concomitant]
  4. AGGRENOX [Concomitant]
  5. CARVEDILOL [Concomitant]
  6. TRICOR [Concomitant]
  7. LEVOTHYROXINE SODIUM [Concomitant]

REACTIONS (1)
  - CARDIAC DISORDER [None]
